FAERS Safety Report 5694084-0 (Version None)
Quarter: 2008Q2

REPORT INFORMATION
  Report Type: 
  Country: None (occurrence: None)
  Receive Date: 20080402
  Receipt Date: 20080321
  Transmission Date: 20081010
  Serious: Yes (Hospitalization)
  Sender: FDA-Public Use
  Company Number: PAR_02141_2008

PATIENT
  Sex: Male
  Weight: 62.5964 kg

DRUGS (2)
  1. MEGACE ES [Suspect]
     Indication: DECREASED APPETITE
     Dosage: (1 DF QD 625 MG/5ML, (1 DF QD 625 MG/5 ML)
     Dates: start: 20071204
  2. MEGACE ES [Suspect]
     Indication: DECREASED APPETITE
     Dosage: (1 DF QD 625 MG/5ML, (1 DF QD 625 MG/5 ML)
     Dates: start: 20080221

REACTIONS (4)
  - DEEP VEIN THROMBOSIS [None]
  - FALL [None]
  - MUSCULOSKELETAL CHEST PAIN [None]
  - TREATMENT NONCOMPLIANCE [None]
